FAERS Safety Report 6786707-X (Version None)
Quarter: 2010Q2

REPORT INFORMATION
  Report Type: 
  Country: None (occurrence: None)
  Receive Date: 20100623
  Receipt Date: 20100611
  Transmission Date: 20101027
  Serious: Yes (Hospitalization)
  Sender: FDA-Public Use
  Company Number: DE-VALEANT-2010VX000949

PATIENT
  Age: 79 Year
  Sex: Male

DRUGS (1)
  1. MESTINON [Suspect]
     Indication: DRUG USE FOR UNKNOWN INDICATION
     Route: 048

REACTIONS (4)
  - CONVULSION [None]
  - HYPOTENSION [None]
  - STUPOR [None]
  - TACHYCARDIA [None]
